FAERS Safety Report 4976359-3 (Version None)
Quarter: 2006Q2

REPORT INFORMATION
  Report Type: 
  Country: None (occurrence: None)
  Receive Date: 20060412
  Receipt Date: 20060330
  Transmission Date: 20061013
  Serious: Yes (Other)
  Sender: FDA-Public Use
  Company Number: 2006043694

PATIENT
  Age: 77 Year
  Sex: Female
  Weight: 117.9352 kg

DRUGS (7)
  1. TOLTERODINE TARTRATE [Suspect]
     Indication: URINARY INCONTINENCE
     Dosage: 2 MG (2 MG, 1 IN 1 D), ORAL
     Route: 048
  2. LOTENSIN [Suspect]
     Indication: HYPERTENSION
     Dates: start: 20020101, end: 20020101
  3. ALL OTHER THERAPEUTIC PRODUCTS (ALL OTHER THERAPEUTIC PRODUCTS) [Suspect]
     Indication: SHOULDER PAIN
  4. TERAZOSIN (TERAZOSIN) [Concomitant]
  5. ASPIRIN [Concomitant]
  6. ADALAT CC [Concomitant]
  7. ACCUPRIL [Concomitant]

REACTIONS (7)
  - COUGH [None]
  - DRUG EFFECT DECREASED [None]
  - HEART RATE INCREASED [None]
  - RENAL HAEMORRHAGE [None]
  - ROTATOR CUFF SYNDROME [None]
  - SWELLING [None]
  - WEIGHT DECREASED [None]
